FAERS Safety Report 13662593 (Version 1)
Quarter: 2017Q2

REPORT INFORMATION
  Report Type: Report from Study
  Country: PL (occurrence: PL)
  Receive Date: 20170618
  Receipt Date: 20170618
  Transmission Date: 20170830
  Serious: Yes (Other)
  Sender: FDA-Public Use
  Company Number: PL-TAIHO ONCOLOGY INC-JPTT170739

PATIENT
  Age: 77 Year
  Sex: Male
  Weight: 67.5 kg

DRUGS (13)
  1. ATORVASTEROL [Concomitant]
     Active Substance: ATORVASTATIN
     Indication: PROPHYLAXIS
     Dosage: 10 MG, QD
     Route: 048
     Dates: start: 200905
  2. FOLIC ACID. [Concomitant]
     Active Substance: FOLIC ACID
     Indication: PROPHYLAXIS
     Dosage: 15 MG, BID
     Route: 048
     Dates: start: 20170307
  3. LONSURF [Suspect]
     Active Substance: TIPIRACIL HYDROCHLORIDE\TRIFLURIDINE
     Dosage: 60 MG (35 MG/M2) BID ON DAYS 1-5 AND 8-12 OF EACH 28-DAY CYCLE
     Route: 048
     Dates: start: 20170421
  4. SPIRIVA [Concomitant]
     Active Substance: TIOTROPIUM BROMIDE MONOHYDRATE
     Indication: CHRONIC OBSTRUCTIVE PULMONARY DISEASE
     Dosage: 2.5 MICROG, BID
     Route: 048
     Dates: start: 200203
  5. EUPHYLIN [Concomitant]
     Active Substance: AMINOPHYLLINE
     Indication: CHRONIC OBSTRUCTIVE PULMONARY DISEASE
     Dosage: 300 MG, QD
     Route: 048
     Dates: start: 200203
  6. TAMSULOSIN [Concomitant]
     Active Substance: TAMSULOSIN
     Indication: BENIGN PROSTATIC HYPERPLASIA
     Dosage: 0.4 MG, QD
     Route: 048
     Dates: start: 20170301
  7. PYRIDOXINE HYDROCHLORIDE. [Concomitant]
     Active Substance: PYRIDOXINE HYDROCHLORIDE
     Indication: PROPHYLAXIS
     Dosage: 50 MG, TID
     Route: 048
     Dates: start: 20170307
  8. LONSURF [Suspect]
     Active Substance: TIPIRACIL HYDROCHLORIDE\TRIFLURIDINE
     Indication: COLORECTAL CANCER METASTATIC
     Dosage: 60 MG (35 MG/M2) BID ON DAYS 1-5 AND 8-12 OF EACH 28-DAY CYCLE
     Route: 048
     Dates: start: 20170208, end: 20170219
  9. LONSURF [Suspect]
     Active Substance: TIPIRACIL HYDROCHLORIDE\TRIFLURIDINE
     Dosage: 60 MG (35 MG/M2) BID ON DAYS 1-5 AND 8-12 OF EACH 28-DAY CYCLE
     Route: 048
     Dates: start: 20170315, end: 20170326
  10. GLUCOPHAGE [Concomitant]
     Active Substance: METFORMIN HYDROCHLORIDE
     Indication: DIABETES MELLITUS
     Dosage: 500 MG, BID
     Route: 048
     Dates: start: 200707
  11. ZAFIRON [Concomitant]
     Indication: CHRONIC OBSTRUCTIVE PULMONARY DISEASE
     Dosage: 12 MICROG, BID
     Route: 048
     Dates: start: 200203
  12. FLUTIXON [Concomitant]
     Indication: CHRONIC OBSTRUCTIVE PULMONARY DISEASE
     Dosage: 250 MICROG, BID
     Route: 048
     Dates: start: 200203
  13. NEBILET [Concomitant]
     Active Substance: NEBIVOLOL
     Indication: HYPERTENSION
     Dosage: 5 MG, QD
     Route: 048
     Dates: start: 200905

REACTIONS (1)
  - Atrial fibrillation [Not Recovered/Not Resolved]

NARRATIVE: CASE EVENT DATE: 20170419
